FAERS Safety Report 7680770-X (Version None)
Quarter: 2011Q3

REPORT INFORMATION
  Report Type: 
  Country: None (occurrence: None)
  Receive Date: 20110812
  Receipt Date: 20110805
  Transmission Date: 20111222
  Serious: Yes (Hospitalization, Other)
  Sender: FDA-Public Use
  Company Number: US-BAYER-201029283NA

PATIENT
  Age: 45 Year
  Sex: Female
  Weight: 52.4 kg

DRUGS (9)
  1. YASMIN [Suspect]
     Dosage: UNK
     Dates: start: 20030101, end: 20040101
  2. ANTIBIOTICS [Concomitant]
     Indication: LUNG INFILTRATION
     Dosage: UNK
     Dates: start: 20071201
  3. YAZ [Suspect]
  4. LEXAPRO [Concomitant]
     Indication: DEPRESSION
  5. XANAX [Concomitant]
     Indication: STRESS
  6. STEROID [Concomitant]
  7. YAZ [Suspect]
     Indication: PREMENSTRUAL SYNDROME
     Route: 048
     Dates: start: 20070701, end: 20080601
  8. YAZ [Suspect]
     Dosage: UNK
     Dates: start: 20030101, end: 20040101
  9. YASMIN [Suspect]
     Indication: PREMENSTRUAL SYNDROME
     Dosage: UNK
     Route: 048
     Dates: start: 20070701, end: 20080630

REACTIONS (7)
  - CHEST PAIN [None]
  - PULMONARY HYPERTENSION [None]
  - DYSPNOEA [None]
  - PNEUMONIA [None]
  - LUNG INFILTRATION [None]
  - PULMONARY EMBOLISM [None]
  - PAIN [None]
